FAERS Safety Report 7476262-3 (Version None)
Quarter: 2011Q2

REPORT INFORMATION
  Report Type: 
  Country: None (occurrence: None)
  Receive Date: 20110512
  Receipt Date: 20110502
  Transmission Date: 20111010
  Serious: Yes (Hospitalization)
  Sender: FDA-Public Use
  Company Number: US-ELI_LILLY_AND_COMPANY-US201105000808

PATIENT
  Sex: Female

DRUGS (4)
  1. ASPIRIN [Concomitant]
     Dosage: UNK, UNKNOWN
     Route: 065
  2. CYMBALTA [Suspect]
     Dosage: 60 MG, QD
     Route: 065
  3. CYMBALTA [Suspect]
     Dosage: 120 MG, QD
     Route: 065
  4. CYMBALTA [Suspect]
     Indication: DEPRESSION
     Dosage: 60 MG, QD
     Route: 065

REACTIONS (5)
  - HEART RATE IRREGULAR [None]
  - BLOOD PRESSURE INCREASED [None]
  - PANIC ATTACK [None]
  - PALPITATIONS [None]
  - ANXIETY [None]
